FAERS Safety Report 9247734 (Version 1)
Quarter: 2013Q2

REPORT INFORMATION
  Report Type: Spontaneous
  Country: BR (occurrence: BR)
  Receive Date: 20130423
  Receipt Date: 20130423
  Transmission Date: 20140414
  Serious: Yes (Other)
  Sender: FDA-Public Use
  Company Number: BR-PFIZER INC-2013125243

PATIENT
  Age: 70 Year
  Sex: Male

DRUGS (2)
  1. ATENOLOL [Suspect]
     Indication: HEART RATE INCREASED
     Dosage: UNK
     Route: 048
     Dates: start: 201212, end: 20130411
  2. ATACAND HCT [Suspect]
     Indication: HYPERTENSION
     Dosage: 1 DF, 2X/DAY
     Route: 048
     Dates: start: 2012, end: 20130411

REACTIONS (1)
  - Blood pressure increased [Unknown]
